FAERS Safety Report 4771121-9 (Version None)
Quarter: 2005Q3

REPORT INFORMATION
  Report Type: 
  Country: None (occurrence: None)
  Receive Date: 20050915
  Receipt Date: 20040617
  Transmission Date: 20060218
  Serious: Yes (Death, Hospitalization)
  Sender: FDA-Public Use
  Company Number: IE-ABBOTT-04P-229-0264400-00

PATIENT
  Sex: Female
  Weight: 52.6 kg

DRUGS (2)
  1. HUMIRA [Suspect]
     Indication: RHEUMATOID ARTHRITIS
     Route: 058
     Dates: start: 20040324, end: 20040505
  2. COMBIVENT [Concomitant]
     Indication: LOWER RESPIRATORY TRACT INFECTION
     Route: 055
     Dates: start: 20040601

REACTIONS (11)
  - ATRIAL FIBRILLATION [None]
  - CHRONIC OBSTRUCTIVE PULMONARY DISEASE [None]
  - DYSPNOEA [None]
  - LYMPHADENOPATHY MEDIASTINAL [None]
  - LYMPHOID TISSUE HYPERPLASIA [None]
  - LYMPHOMA [None]
  - MEDIASTINITIS [None]
  - NEOPLASM MALIGNANT [None]
  - PERICARDIAL EFFUSION [None]
  - PLEURAL EFFUSION [None]
  - RESPIRATORY TRACT INFECTION [None]
